FAERS Safety Report 17601754 (Version 1)
Quarter: 2020Q1

REPORT INFORMATION
  Report Type: Spontaneous
  Country: US (occurrence: US)
  Receive Date: 20200330
  Receipt Date: 20200330
  Transmission Date: 20200409
  Serious: Yes (Disabling, Other)
  Sender: FDA-Public Use
  Company Number: US-TEVA-732431USA

PATIENT
  Sex: Female

DRUGS (39)
  1. ATIVAN [Concomitant]
     Active Substance: LORAZEPAM
  2. HYDROXYCHLOROQUINE DIPHOSPHATE [Concomitant]
     Active Substance: HYDROXYCHLOROQUINE DIPHOSPHATE
  3. CYMBALTA [Concomitant]
     Active Substance: DULOXETINE HYDROCHLORIDE
  4. LIPITOR [Concomitant]
     Active Substance: ATORVASTATIN CALCIUM
  5. PREDNISONE. [Concomitant]
     Active Substance: PREDNISONE
  6. ACTOS [Concomitant]
     Active Substance: PIOGLITAZONE HYDROCHLORIDE
  7. CELLCEPT [Concomitant]
     Active Substance: MYCOPHENOLATE MOFETIL\MYCOPHENOLATE MOFETIL HYDROCHLORIDE
     Dosage: 500
  8. ERGOCALCIFEROL. [Concomitant]
     Active Substance: ERGOCALCIFEROL
  9. CLONAZEPAM. [Concomitant]
     Active Substance: CLONAZEPAM
  10. NAPROXEN SODIUM. [Concomitant]
     Active Substance: NAPROXEN SODIUM
  11. PAXIL CR [Concomitant]
     Active Substance: PAROXETINE HYDROCHLORIDE
  12. VICODIN HP [Concomitant]
     Active Substance: ACETAMINOPHEN\HYDROCODONE BITARTRATE
  13. PROAIR RESPICLICK [Suspect]
     Active Substance: ALBUTEROL SULFATE
     Indication: NARCOLEPSY
  14. XYREM [Suspect]
     Active Substance: SODIUM OXYBATE
     Indication: CATAPLEXY
     Dosage: DOSE ADJUSTMENTS
     Route: 048
  15. AMBIEN [Concomitant]
     Active Substance: ZOLPIDEM TARTRATE
  16. LIPITOR [Concomitant]
     Active Substance: ATORVASTATIN CALCIUM
  17. LUNESTA [Concomitant]
     Active Substance: ESZOPICLONE
  18. PROAIR RESPICLICK [Suspect]
     Active Substance: ALBUTEROL SULFATE
     Indication: BRONCHITIS
     Route: 065
  19. PROAIR RESPICLICK [Suspect]
     Active Substance: ALBUTEROL SULFATE
     Indication: CATAPLEXY
  20. XYREM [Suspect]
     Active Substance: SODIUM OXYBATE
     Indication: PRODUCT USED FOR UNKNOWN INDICATION
  21. DEPLIN [Concomitant]
     Active Substance: LEVOMEFOLATE CALCIUM
  22. PAXIL [Concomitant]
     Active Substance: PAROXETINE HYDROCHLORIDE
  23. TANZEUM [Concomitant]
     Active Substance: ALBIGLUTIDE
  24. BENLYSTA [Concomitant]
     Active Substance: BELIMUMAB
  25. OMEGA 3 FISH OIL [Concomitant]
     Active Substance: FISH OIL\OMEGA-3 FATTY ACIDS
  26. CLONAZEPAM. [Concomitant]
     Active Substance: CLONAZEPAM
  27. ABILIFY DISCMELT [Concomitant]
     Active Substance: ARIPIPRAZOLE
  28. VALIUM [Concomitant]
     Active Substance: DIAZEPAM
  29. NAPROXEN EC [Concomitant]
     Active Substance: NAPROXEN
  30. PIROXICAM. [Concomitant]
     Active Substance: PIROXICAM
  31. XYREM [Suspect]
     Active Substance: SODIUM OXYBATE
     Indication: NARCOLEPSY
     Dosage: 9 GRAM DAILY;
     Route: 048
  32. TANZEUM [Concomitant]
     Active Substance: ALBIGLUTIDE
  33. CELLCEPT 250 [Concomitant]
     Dosage: 250
  34. PLAQUENIL [Concomitant]
     Active Substance: HYDROXYCHLOROQUINE SULFATE
  35. WELLBUTRIN XL [Concomitant]
     Active Substance: BUPROPION HYDROCHLORIDE
  36. PROAIR RESPICLICK [Suspect]
     Active Substance: ALBUTEROL SULFATE
     Indication: PRODUCT USED FOR UNKNOWN INDICATION
  37. XYREM [Suspect]
     Active Substance: SODIUM OXYBATE
     Indication: BRONCHITIS
     Dosage: 6 GRAM DAILY;
     Route: 048
  38. ABILIFY [Concomitant]
     Active Substance: ARIPIPRAZOLE
  39. WELLBUTRIN SR [Concomitant]
     Active Substance: BUPROPION HYDROCHLORIDE

REACTIONS (11)
  - Hypersensitivity [Unknown]
  - Memory impairment [Unknown]
  - Blood cholesterol abnormal [Unknown]
  - Malaise [Unknown]
  - Therapeutic response unexpected [Unknown]
  - Loss of consciousness [Unknown]
  - Tremor [Unknown]
  - Pre-existing condition improved [Unknown]
  - Bronchitis [Unknown]
  - Joint swelling [Unknown]
  - Asthma [Unknown]

NARRATIVE: CASE EVENT DATE: 2016
